FAERS Safety Report 11088214 (Version 1)
Quarter: 2015Q2

REPORT INFORMATION
  Report Type: Spontaneous
  Country: CR (occurrence: CR)
  Receive Date: 20150504
  Receipt Date: 20150504
  Transmission Date: 20150821
  Serious: Yes (Other)
  Sender: FDA-Public Use
  Company Number: CR-PFIZER INC-2015147706

PATIENT
  Sex: Female

DRUGS (1)
  1. ALTRULINE [Suspect]
     Active Substance: SERTRALINE HYDROCHLORIDE
     Dosage: 50 MG, UNK

REACTIONS (1)
  - Breast disorder [Unknown]
